FAERS Safety Report 9705764 (Version 1)
Quarter: 2013Q4

REPORT INFORMATION
  Report Type: Spontaneous
  Country: US (occurrence: US)
  Receive Date: 20131122
  Receipt Date: 20131122
  Transmission Date: 20140711
  Serious: No
  Sender: FDA-Public Use
  Company Number: US-GILEAD-2008-0017967

PATIENT
  Sex: 0
  Weight: 79.38 kg

DRUGS (10)
  1. LETAIRIS [Suspect]
     Indication: PULMONARY ARTERIAL HYPERTENSION
     Route: 048
     Dates: start: 20080815
  2. BUMEX [Concomitant]
     Dosage: AS DIRECTED
     Route: 048
  3. ZOCOR [Concomitant]
     Dosage: AS DIRECTED
     Route: 048
  4. COREG [Concomitant]
     Dosage: AS DIRECTED
     Route: 048
  5. TRAVATAN [Concomitant]
     Dosage: AS DIRECTED
     Route: 047
  6. MULTIVITAMIN [Concomitant]
     Route: 048
  7. BENICAR [Concomitant]
     Dosage: AS DIRECTED
     Route: 048
  8. CARTIA XT [Concomitant]
     Dosage: AS DIRECTED
     Route: 048
  9. POTASSIUM CHLORIDE [Concomitant]
     Dosage: AS DIRECTED
     Route: 048
  10. VITAMIN C [Concomitant]
     Route: 048

REACTIONS (5)
  - Heart rate increased [None]
  - Nausea [None]
  - Gait disturbance [None]
  - Erythema [None]
  - Local swelling [None]
